FAERS Safety Report 10403206 (Version 1)
Quarter: 2014Q3

REPORT INFORMATION
  Report Type: Spontaneous
  Country: CA (occurrence: CA)
  Receive Date: 20140822
  Receipt Date: 20140822
  Transmission Date: 20150326
  Serious: Yes (Disabling)
  Sender: FDA-Public Use
  Company Number: CA-ACTAVIS-2014-18411

PATIENT
  Age: 61 Year
  Sex: Female

DRUGS (4)
  1. QUETIAPINE (UNKNOWN) [Suspect]
     Active Substance: QUETIAPINE
     Dosage: UNK
     Route: 065
  2. ACTONEL [Concomitant]
     Active Substance: RISEDRONATE SODIUM
     Indication: PRODUCT USED FOR UNKNOWN INDICATION
  3. LETROZOLE. [Concomitant]
     Active Substance: LETROZOLE
     Indication: PRODUCT USED FOR UNKNOWN INDICATION
  4. QUETIAPINE (UNKNOWN) [Suspect]
     Active Substance: QUETIAPINE
     Indication: PRODUCT USED FOR UNKNOWN INDICATION
     Dosage: 175 MG, DAILY
     Route: 048

REACTIONS (8)
  - Depression [Recovering/Resolving]
  - Lethargy [Recovering/Resolving]
  - Musculoskeletal chest pain [Recovering/Resolving]
  - Rash generalised [Recovering/Resolving]
  - Joint stiffness [Recovering/Resolving]
  - Mouth ulceration [Recovering/Resolving]
  - Drug ineffective [Recovering/Resolving]
  - Lung disorder [Recovering/Resolving]
